FAERS Safety Report 15533018 (Version 1)
Quarter: 2018Q4

REPORT INFORMATION
  Report Type: Report from Study
  Country: US (occurrence: US)
  Receive Date: 20181019
  Receipt Date: 20181019
  Transmission Date: 20190205
  Serious: Yes (Other)
  Sender: FDA-Public Use
  Company Number: PHEH2018US043441

PATIENT
  Sex: Male

DRUGS (1)
  1. COSENTYX [Suspect]
     Active Substance: SECUKINUMAB
     Indication: PSORIATIC ARTHROPATHY
     Dosage: UNK
     Route: 058
     Dates: start: 201807, end: 201809

REACTIONS (6)
  - Road traffic accident [Unknown]
  - Osteoarthritis [Unknown]
  - Skin discolouration [Unknown]
  - Nail discolouration [Unknown]
  - Joint swelling [Recovering/Resolving]
  - Skin swelling [Recovering/Resolving]
